FAERS Safety Report 16352868 (Version 4)
Quarter: 2019Q3

REPORT INFORMATION
  Report Type: Spontaneous
  Country: US (occurrence: US)
  Receive Date: 20190524
  Receipt Date: 20190819
  Transmission Date: 20191004
  Serious: Yes (Hospitalization)
  Sender: FDA-Public Use
  Company Number: US-VERTEX PHARMACEUTICALS-2019-004576

PATIENT
  Age: 16 Year
  Sex: Female

DRUGS (23)
  1. CYPROHEPTADINE. [Concomitant]
     Active Substance: CYPROHEPTADINE
     Dosage: TAKE 1 TABLET (4 MG TOTAL) BY MOUTH 2 (TWO) TIMES A DAY.
  2. CHOLECALCIFEROL [Concomitant]
     Active Substance: CHOLECALCIFEROL
     Dosage: TAKE 1 CAPSULE (2,000 UNITS TOTAL) BY MOUTH 1 (ONE) TIME EACH DAY
  3. FLUTICASONE PROPIONATE. [Concomitant]
     Active Substance: FLUTICASONE PROPIONATE
     Dosage: ADMINISTER 2 SPRAYS INTO EACH NOSTRIL 2 (TWO) TIMES A DAY
  4. PANCRELIPASE. [Concomitant]
     Active Substance: PANCRELIPASE
     Dosage: TAKE 5 CAPSULES WITH MEALS AND 3 CAPSULES WITH SNACKS
  5. TOBRAMYCIN. [Concomitant]
     Active Substance: TOBRAMYCIN
     Indication: LOWER RESPIRATORY TRACT INFECTION
     Dosage: CYCLE ON/OFF EVERY 28 DAYS
     Route: 055
  6. ALBUTEROL                          /00139501/ [Concomitant]
     Active Substance: ALBUTEROL
     Dosage: 1 VIAL VIA NEBULIZER 2 TIMES PER DAY AND EVERY 2 HOURS AS NEEDED
  7. SODIUM CHLORIDE. [Concomitant]
     Active Substance: SODIUM CHLORIDE
     Dosage: INHALE 4 ML 2 (TWO) TIMES A DAY
  8. SYMDEKO [Suspect]
     Active Substance: IVACAFTOR\TEZACAFTOR
     Indication: CYSTIC FIBROSIS
     Dosage: 1 DOSAGE FORM, BID
     Route: 048
     Dates: start: 201903
  9. AZITHROMYCIN ANHYDROUS. [Concomitant]
     Active Substance: AZITHROMYCIN ANHYDROUS
     Dosage: TAKE 500 MG BY MOUTH 3 (THREE) TIMES A WEEK.
  10. CIPROFLOXACIN. [Concomitant]
     Active Substance: CIPROFLOXACIN
     Dosage: TAKE 1 TABLET (750 MG TOTAL) BY MOUTH 2 (TWO) TIMES A DAY
  11. HUMALOG [Concomitant]
     Active Substance: INSULIN LISPRO
     Dosage: INJECT UP TO 50 UNITS PER DAY
  12. ALBUTEROL HFA [Concomitant]
     Active Substance: ALBUTEROL SULFATE
     Dosage: INHALE 2 PUFFS WITH SPACER TWICE DAILY BEFORE HYPERTONIC SALINE AND EVERY 3-4 HOURS AS NEEDED
  13. IBUPROFEN. [Concomitant]
     Active Substance: IBUPROFEN
     Dosage: TAKE 1 TABLET BY MOUTH IF NEEDED
  14. FORMOTEROL W/MOMETASONE [Concomitant]
     Active Substance: FORMOTEROL\MOMETASONE
     Dosage: INHALE 2 PUFFS 2 (TWO) TIMES A DAY
  15. VITAMIN D2 + CALCIUM               /00202201/ [Concomitant]
     Dosage: 1 TABLET BY MOUTH 3 (THREE) TIMES A DAY.
  16. INSULIN GLARGINE [Concomitant]
     Active Substance: INSULIN GLARGINE
     Dosage: GIVE UP TO 50 UNITS PER DAY
  17. ONDANSETRON [Concomitant]
     Active Substance: ONDANSETRON
     Dosage: TAKE 2 TABLETS BY MOUTH EVERY 8 HOURS IF NEEDED FOR NAUSEA OR VOMITING.
  18. BUDESONIDE. [Concomitant]
     Active Substance: BUDESONIDE
  19. ESOMEPRAZOLE. [Concomitant]
     Active Substance: ESOMEPRAZOLE MAGNESIUM
     Dosage: TAKE 1 CAPSULE (40 MG TOTAL) BY MOUTH 1 (ONE) TIME EACH DAY BEFORE BREAKFAST
  20. CETIRIZINE [Concomitant]
     Active Substance: CETIRIZINE HYDROCHLORIDE
     Dosage: TAKE 1 TABLET-BY MOUTH 1 (ONE) TIME
  21. DORNASE ALFA. [Concomitant]
     Active Substance: DORNASE ALFA
     Dosage: TAKE 2.5 MG BY NEBULIZATION 1 (ONE) TIME EACH DAY.
  22. GLUCAGON. [Concomitant]
     Active Substance: GLUCAGON
  23. VITAMIN E                          /00110501/ [Concomitant]
     Active Substance: TOCOPHEROL
     Dosage: TAKE ONE (1) CAPSULE(S) BY MOUTH TWICE A DAY WITH MEALS

REACTIONS (3)
  - Sinusitis [Recovered/Resolved]
  - Lower respiratory tract infection [Recovered/Resolved]
  - Nausea [Recovered/Resolved]

NARRATIVE: CASE EVENT DATE: 20190418
